FAERS Safety Report 5681552-0 (Version None)
Quarter: 2008Q1

REPORT INFORMATION
  Report Type: 
  Country: None (occurrence: None)
  Receive Date: 20080326
  Receipt Date: 20070216
  Transmission Date: 20080703
  Serious: No
  Sender: FDA-Public Use
  Company Number: US-BAYER-US-2007-005938

PATIENT
  Age: 27 Year
  Sex: Female
  Weight: 79 kg

DRUGS (4)
  1. MIRENA [Suspect]
     Indication: CONTRACEPTION
     Route: 015
     Dates: start: 20050101
  2. LEVOTHYROXINE SODIUM [Concomitant]
     Route: 048
  3. ZOLOFT [Concomitant]
     Route: 048
  4. LAMICTAL ^BURROUGHS WELLCOME^ [Concomitant]
     Route: 048

REACTIONS (3)
  - AMENORRHOEA [None]
  - METRORRHAGIA [None]
  - VAGINAL HAEMORRHAGE [None]
